FAERS Safety Report 5487486-9 (Version None)
Quarter: 2007Q4

REPORT INFORMATION
  Report Type: 
  Country: None (occurrence: None)
  Receive Date: 20071016
  Receipt Date: 20071004
  Transmission Date: 20080405
  Serious: Yes (Hospitalization)
  Sender: FDA-Public Use
  Company Number: BR-PFIZER INC-2007082728

PATIENT
  Sex: Male
  Weight: 62 kg

DRUGS (2)
  1. FELDENE [Suspect]
     Indication: HEADACHE
     Route: 048
     Dates: start: 20070809, end: 20070810
  2. FELDENE [Suspect]
     Indication: EYE PAIN

REACTIONS (3)
  - BONE MARROW MYELOGRAM ABNORMAL [None]
  - PROTHROMBIN TIME ABNORMAL [None]
  - THROMBOCYTOPENIA [None]
